FAERS Safety Report 25830527 (Version 2)
Quarter: 2025Q4

REPORT INFORMATION
  Report Type: Spontaneous
  Country: CN (occurrence: CN)
  Receive Date: 20250922
  Receipt Date: 20251007
  Transmission Date: 20260118
  Serious: Yes (Other)
  Sender: STRIDES
  Company Number: None

PATIENT
  Age: 40 Year
  Sex: Female

DRUGS (12)
  1. PREDNISONE [Suspect]
     Active Substance: PREDNISONE
     Indication: Immunosuppressant drug therapy
     Dosage: 20 MILLIGRAM, QD
     Route: 065
     Dates: start: 2019
  2. PREDNISONE [Suspect]
     Active Substance: PREDNISONE
     Dosage: UNK
     Route: 065
  3. AZATHIOPRINE [Suspect]
     Active Substance: AZATHIOPRINE
     Indication: Immunosuppressant drug therapy
     Dosage: UNK
     Route: 065
     Dates: start: 2018
  4. URSODIOL [Suspect]
     Active Substance: URSODIOL
     Indication: Primary biliary cholangitis
     Dosage: 750 MILLIGRAM, QD (CAPSULE)
     Route: 065
     Dates: start: 2012, end: 202307
  5. URSODIOL [Suspect]
     Active Substance: URSODIOL
     Indication: Hepatitis B
  6. TENOFOVIR DISOPROXIL FUMARATE [Suspect]
     Active Substance: TENOFOVIR DISOPROXIL FUMARATE
     Indication: Antiviral treatment
     Dosage: UNK
     Route: 065
     Dates: start: 2017
  7. METHYLPREDNISOLONE [Suspect]
     Active Substance: METHYLPREDNISOLONE
     Indication: Hepatic cirrhosis
     Dosage: 16 MG, QD
     Route: 065
     Dates: start: 2021, end: 202307
  8. METHYLPREDNISOLONE [Suspect]
     Active Substance: METHYLPREDNISOLONE
     Dosage: 12 MG, QD
     Route: 065
     Dates: start: 2023
  9. ENTECAVIR [Concomitant]
     Active Substance: ENTECAVIR
     Indication: Antiviral treatment
     Dosage: UNK
     Route: 065
  10. MESCALINE [Concomitant]
     Active Substance: MESCALINE
     Indication: Product used for unknown indication
     Dosage: UNK
     Route: 065
     Dates: start: 2021
  11. GLYCYRRHIZIN [Concomitant]
     Active Substance: GLYCYRRHIZIN
     Indication: Liver disorder
     Dosage: UNK
     Route: 065
     Dates: start: 2021
  12. TELBIVUDINE [Concomitant]
     Active Substance: TELBIVUDINE
     Indication: Hepatitis B
     Dosage: UNK
     Route: 065
     Dates: start: 2014, end: 2015

REACTIONS (5)
  - Leukopenia [Unknown]
  - Splenomegaly [Unknown]
  - Treatment noncompliance [Unknown]
  - Maternal exposure during pregnancy [Unknown]
  - Off label use [Unknown]

NARRATIVE: CASE EVENT DATE: 20230701
